FAERS Safety Report 9835886 (Version 2)
Quarter: 2014Q3

REPORT INFORMATION
  Report Type: Spontaneous
  Country: US (occurrence: US)
  Receive Date: 20140122
  Receipt Date: 20140808
  Transmission Date: 20150326
  Serious: Yes (Hospitalization, Other)
  Sender: FDA-Public Use
  Company Number: US-009507513-1401USA010006

PATIENT
  Sex: Female

DRUGS (1)
  1. NUVARING [Suspect]
     Active Substance: ETHINYL ESTRADIOL\ETONOGESTREL
     Dosage: 0.12-0.015 LEAVE IN PLACE FOR 3 WEEKS, AFTER 7 DAY BREAK, INSERT NEW ONE
     Route: 067
     Dates: start: 20130308

REACTIONS (8)
  - Deep vein thrombosis [Unknown]
  - Asthma [Unknown]
  - Oedema peripheral [Unknown]
  - Antiphospholipid syndrome [Unknown]
  - Systemic lupus erythematosus [Unknown]
  - Gastrooesophageal reflux disease [Unknown]
  - Tonsillectomy [Unknown]
  - Pulmonary embolism [Unknown]

NARRATIVE: CASE EVENT DATE: 20130509
